FAERS Safety Report 7126949-7 (Version None)
Quarter: 2010Q4

REPORT INFORMATION
  Report Type: 
  Country: None (occurrence: None)
  Receive Date: 20101129
  Receipt Date: 20100712
  Transmission Date: 20110411
  Serious: No
  Sender: FDA-Public Use
  Company Number: US-PFIZER INC-2007027037

PATIENT
  Sex: Male
  Weight: 103 kg

DRUGS (6)
  1. VIAGRA [Suspect]
     Indication: ERECTILE DYSFUNCTION
     Dosage: 50 MG, AS NEEDED
     Route: 048
     Dates: start: 20060101
  2. VIAGRA [Suspect]
     Dosage: 100 MG, UNK
     Route: 048
  3. COREG [Concomitant]
     Indication: HYPERTENSION
     Dosage: 25 MG, UNK
     Route: 048
  4. PLAVIX [Concomitant]
     Indication: HYPERTENSION
     Dosage: 75 MG, UNK
     Route: 048
  5. HYDROCHLOROTHIAZIDE [Concomitant]
     Indication: POLYURIA
     Dosage: 50 MG, UNK
     Route: 048
  6. VASOTEC [Concomitant]
     Indication: HYPERTENSION
     Dosage: 10 MG, UNK
     Route: 048

REACTIONS (1)
  - DRUG INEFFECTIVE [None]
